FAERS Safety Report 13853682 (Version 1)
Quarter: 2017Q3

REPORT INFORMATION
  Report Type: Spontaneous
  Country: US (occurrence: US)
  Receive Date: 20170810
  Receipt Date: 20170810
  Transmission Date: 20171127
  Serious: Yes (Life-Threatening)
  Sender: FDA-Public Use
  Company Number: None

PATIENT
  Age: 62 Year
  Sex: Male

DRUGS (1)
  1. ENBREL [Suspect]
     Active Substance: ETANERCEPT
     Dates: start: 20101222

REACTIONS (4)
  - Metastases to spine [None]
  - Neoplasm malignant [None]
  - Metastases to lung [None]
  - Metastases to lymph nodes [None]

NARRATIVE: CASE EVENT DATE: 20170807
